FAERS Safety Report 12341557 (Version 4)
Quarter: 2017Q2

REPORT INFORMATION
  Report Type: Spontaneous
  Country: MX (occurrence: MX)
  Receive Date: 20160506
  Receipt Date: 20170628
  Transmission Date: 20170830
  Serious: Yes (Death, Hospitalization, Other)
  Sender: FDA-Public Use
  Company Number: MX-PFIZER INC-2016234007

PATIENT
  Age: 9 Year
  Sex: Female

DRUGS (4)
  1. EPIRUBICIN HCL [Suspect]
     Active Substance: EPIRUBICIN HYDROCHLORIDE
     Indication: HODGKIN^S DISEASE
     Dosage: 48 MG/M2, CYCLIC (12 CYCLES)
     Dates: end: 20140204
  2. BLEOMYCIN [Suspect]
     Active Substance: BLEOMYCIN SULFATE
     Indication: HODGKIN^S DISEASE
     Dosage: 10.8 IU/M2/DOSE, 12 CYCLES
     Dates: end: 20140204
  3. DACARBAZINE. [Suspect]
     Active Substance: DACARBAZINE
     Indication: HODGKIN^S DISEASE
     Dosage: 392 MG/M2, 12 CYCLES
     Dates: end: 20140204
  4. VINBLASTINE [Suspect]
     Active Substance: VINBLASTINE
     Indication: HODGKIN^S DISEASE
     Dosage: 6 MG/M2/DOSE, 12 CYCLES
     Dates: end: 20140204

REACTIONS (13)
  - Pulmonary hypertension [Unknown]
  - Metabolic acidosis [Recovering/Resolving]
  - Mitral valve incompetence [Unknown]
  - Cardiotoxicity [Fatal]
  - Asthenia [Unknown]
  - Diarrhoea [Unknown]
  - Congestive cardiomyopathy [Fatal]
  - Oliguria [Unknown]
  - Systemic inflammatory response syndrome [Unknown]
  - Vomiting [Unknown]
  - Decreased appetite [Unknown]
  - Hypotension [Not Recovered/Not Resolved]
  - Blood lactic acid increased [Unknown]

NARRATIVE: CASE EVENT DATE: 201402
